FAERS Safety Report 15937127 (Version 4)
Quarter: 2019Q3

REPORT INFORMATION
  Report Type: Spontaneous
  Country: US (occurrence: US)
  Receive Date: 20190208
  Receipt Date: 20190731
  Transmission Date: 20191004
  Serious: Yes (Other)
  Sender: FDA-Public Use
  Company Number: US-ASTRAZENECA-2018SF14310

PATIENT
  Age: 60 Year
  Sex: Female
  Weight: 47.2 kg

DRUGS (37)
  1. NEXIUM [Suspect]
     Active Substance: ESOMEPRAZOLE MAGNESIUM
     Indication: DYSPEPSIA
     Route: 048
     Dates: start: 2013, end: 2014
  2. PANTOPRAZOLE [Suspect]
     Active Substance: PANTOPRAZOLE
     Route: 065
     Dates: start: 2016
  3. DEPAKOTE [Concomitant]
     Active Substance: DIVALPROEX SODIUM
  4. DULOXETINE. [Concomitant]
     Active Substance: DULOXETINE
  5. FUROSEMIDE. [Concomitant]
     Active Substance: FUROSEMIDE
  6. TIZANIDINE. [Concomitant]
     Active Substance: TIZANIDINE
  7. CEFACLOR. [Concomitant]
     Active Substance: CEFACLOR
  8. ADVAIR HFA [Concomitant]
     Active Substance: FLUTICASONE PROPIONATE\SALMETEROL XINAFOATE
  9. NEXIUM [Suspect]
     Active Substance: ESOMEPRAZOLE MAGNESIUM
     Indication: DYSPEPSIA
     Route: 048
     Dates: start: 2008, end: 2016
  10. FLUOXETINE [Concomitant]
     Active Substance: FLUOXETINE HYDROCHLORIDE
  11. METOPROLOL TARTRATE. [Concomitant]
     Active Substance: METOPROLOL TARTRATE
  12. NORTRIPTYLINE [Concomitant]
     Active Substance: NORTRIPTYLINE
  13. MAGNESIUM OXIDE. [Concomitant]
     Active Substance: MAGNESIUM OXIDE
  14. TRAZODONE [Concomitant]
     Active Substance: TRAZODONE HYDROCHLORIDE
  15. PRILOSEC [Suspect]
     Active Substance: OMEPRAZOLE MAGNESIUM
     Indication: DYSPEPSIA
     Route: 048
  16. PREVACID 24 HR [Suspect]
     Active Substance: LANSOPRAZOLE
     Route: 065
     Dates: start: 2009, end: 2017
  17. PREVACID 24 HR [Suspect]
     Active Substance: LANSOPRAZOLE
     Route: 065
     Dates: start: 2008, end: 2017
  18. PANTOPRAZOLE [Suspect]
     Active Substance: PANTOPRAZOLE
     Dosage: GENERIC
     Route: 065
     Dates: start: 2016
  19. RANEXA [Concomitant]
     Active Substance: RANOLAZINE
  20. NITROSTAT [Concomitant]
     Active Substance: NITROGLYCERIN
  21. GLIMEPIRIDE. [Concomitant]
     Active Substance: GLIMEPIRIDE
  22. LIPITOR [Concomitant]
     Active Substance: ATORVASTATIN CALCIUM
  23. VITAMIN D3 [Concomitant]
     Active Substance: CHOLECALCIFEROL
  24. AMBIEN [Concomitant]
     Active Substance: ZOLPIDEM TARTRATE
  25. ASPIRIN. [Concomitant]
     Active Substance: ASPIRIN
  26. SUCRALFATE. [Concomitant]
     Active Substance: SUCRALFATE
  27. NORTRIPTYLINE [Concomitant]
     Active Substance: NORTRIPTYLINE
  28. METFORMIN [Concomitant]
     Active Substance: METFORMIN HYDROCHLORIDE
  29. SPIRONOLACTONE. [Concomitant]
     Active Substance: SPIRONOLACTONE
  30. PREVACID [Suspect]
     Active Substance: LANSOPRAZOLE
     Route: 065
     Dates: start: 2009, end: 2017
  31. AMLODIPINE BESYLATE. [Concomitant]
     Active Substance: AMLODIPINE BESYLATE
  32. VITAMIN B12 [Concomitant]
     Active Substance: CYANOCOBALAMIN
  33. VITAMIN C [Concomitant]
     Active Substance: ASCORBIC ACID
  34. ISOSORBIDE MONONITRATE. [Concomitant]
     Active Substance: ISOSORBIDE MONONITRATE
  35. ZOLPIDEM [Concomitant]
     Active Substance: ZOLPIDEM TARTRATE
  36. NEXIUM [Suspect]
     Active Substance: ESOMEPRAZOLE MAGNESIUM
     Indication: DYSPEPSIA
     Route: 048
     Dates: start: 2013, end: 2014
  37. RIBOFLAVIN [Concomitant]
     Active Substance: RIBOFLAVIN

REACTIONS (4)
  - Nephrogenic anaemia [Unknown]
  - Nephropathy [Unknown]
  - Renal failure [Unknown]
  - Chronic kidney disease [Not Recovered/Not Resolved]

NARRATIVE: CASE EVENT DATE: 2015
